FAERS Safety Report 7289360-4 (Version None)
Quarter: 2011Q1

REPORT INFORMATION
  Report Type: 
  Country: None (occurrence: None)
  Receive Date: 20110211
  Receipt Date: 20110204
  Transmission Date: 20110831
  Serious: Yes (Other)
  Sender: FDA-Public Use
  Company Number: US-PFIZER INC-2011026266

PATIENT
  Sex: Female
  Weight: 58.957 kg

DRUGS (5)
  1. AMITRIPTYLINE [Concomitant]
     Indication: MIGRAINE
     Dosage: 50 MG, UNK
  2. AMITRIPTYLINE [Concomitant]
     Indication: HEADACHE
  3. TYLENOL-500 [Concomitant]
     Indication: ARTHRITIS
     Dosage: UNK
  4. LIPITOR [Suspect]
     Indication: BLOOD CHOLESTEROL INCREASED
     Dosage: 10 MG, DAILY
     Route: 048
     Dates: start: 20090101
  5. XANAX [Concomitant]
     Indication: STRESS
     Dosage: UNK

REACTIONS (1)
  - ANAEMIA [None]
